FAERS Safety Report 13370304 (Version 1)
Quarter: 2017Q1

REPORT INFORMATION
  Report Type: Spontaneous
  Country: US (occurrence: US)
  Receive Date: 20170324
  Receipt Date: 20170324
  Transmission Date: 20170429
  Serious: Yes (Hospitalization, Other)
  Sender: FDA-Public Use
  Company Number: US-BRISTOL-MYERS SQUIBB COMPANY-BMS-2017-023525

PATIENT
  Age: 7 Decade
  Sex: Male

DRUGS (1)
  1. OPDIVO [Suspect]
     Active Substance: NIVOLUMAB
     Indication: BRAIN CANCER METASTATIC
     Route: 065
     Dates: start: 2016

REACTIONS (8)
  - Memory impairment [Unknown]
  - Hallucination [Unknown]
  - Paralysis [Unknown]
  - Screaming [Unknown]
  - Liver function test increased [Unknown]
  - Product use issue [Unknown]
  - Coma [Unknown]
  - Adverse event [Unknown]
